FAERS Safety Report 4805591-4 (Version None)
Quarter: 2005Q4

REPORT INFORMATION
  Report Type: 
  Country: None (occurrence: None)
  Receive Date: 20051018
  Receipt Date: 20051008
  Transmission Date: 20060501
  Serious: Yes (Other)
  Sender: FDA-Public Use
  Company Number: 2005140850

PATIENT
  Age: 71 Year
  Sex: Male
  Weight: 81.6475 kg

DRUGS (7)
  1. TIKOSYN [Suspect]
     Indication: ATRIAL FIBRILLATION
     Dosage: (250 MCG)
     Dates: start: 20050608
  2. GLYBURIDE [Concomitant]
  3. POTASSIUM            (POTASSIUM) [Concomitant]
  4. LANOXIN [Concomitant]
  5. BUMETANIDE [Concomitant]
  6. LISINOPRIL [Concomitant]
  7. WARFARIN SODIUM [Concomitant]

REACTIONS (6)
  - ATRIAL FIBRILLATION [None]
  - DIARRHOEA [None]
  - HEART RATE INCREASED [None]
  - HYPERHIDROSIS [None]
  - PALPITATIONS [None]
  - THIRST [None]
